FAERS Safety Report 7136539-8 (Version None)
Quarter: 2010Q4

REPORT INFORMATION
  Report Type: 
  Country: None (occurrence: None)
  Receive Date: 20101206
  Receipt Date: 20081126
  Transmission Date: 20110411
  Serious: Yes (Death)
  Sender: FDA-Public Use
  Company Number: AU-ACTELION-A-CH2008-22862

PATIENT
  Sex: Male

DRUGS (1)
  1. BOSENTAN TABLET 125 MG ROW [Suspect]
     Route: 048

REACTIONS (1)
  - DEATH [None]
